FAERS Safety Report 8332145-8 (Version None)
Quarter: 2012Q2

REPORT INFORMATION
  Report Type: 
  Country: None (occurrence: None)
  Receive Date: 20120503
  Receipt Date: 20120427
  Transmission Date: 20120825
  Serious: Yes (Other)
  Sender: FDA-Public Use
  Company Number: US-AMGEN-USASP2012005007

PATIENT
  Sex: Female

DRUGS (1)
  1. NEUPOGEN [Suspect]
     Indication: IDIOPATHIC NEUTROPENIA
     Dates: start: 19890101, end: 19910101

REACTIONS (4)
  - MYELODYSPLASTIC SYNDROME [None]
  - IMMUNE SYSTEM DISORDER [None]
  - DRUG INEFFECTIVE [None]
  - MECONIUM IN AMNIOTIC FLUID [None]
